FAERS Safety Report 17307687 (Version 4)
Quarter: 2020Q3

REPORT INFORMATION
  Report Type: Spontaneous
  Country: JP (occurrence: JP)
  Receive Date: 20200123
  Receipt Date: 20200818
  Transmission Date: 20201102
  Serious: Yes (Death, Hospitalization, Other)
  Sender: FDA-Public Use
  Company Number: JP-AMGEN-JPNSP2020009646

PATIENT
  Age: 57 Year
  Sex: Female

DRUGS (2)
  1. EVENITY [Suspect]
     Active Substance: ROMOSOZUMAB-AQQG
     Indication: OSTEOPOROSIS
     Dosage: 210 MILLIGRAM
     Route: 058
  2. BONALON [Concomitant]
     Active Substance: ALENDRONATE SODIUM
     Dosage: UNK
     Dates: end: 201901

REACTIONS (5)
  - Interstitial lung disease [Unknown]
  - Arrhythmia [Unknown]
  - Pneumothorax [Unknown]
  - Lung squamous cell carcinoma metastatic [Fatal]
  - Metastases to heart [Unknown]

NARRATIVE: CASE EVENT DATE: 20191230
